FAERS Safety Report 4454411-9 (Version None)
Quarter: 2004Q3

REPORT INFORMATION
  Report Type: 
  Country: None (occurrence: None)
  Receive Date: 20040826
  Receipt Date: 20040527
  Transmission Date: 20050211
  Serious: No
  Sender: FDA-Public Use
  Company Number: WAES 0405USA02075

PATIENT
  Age: 50 Year
  Sex: Female

DRUGS (1)
  1. ZETIA [Suspect]
     Indication: BLOOD CHOLESTEROL INCREASED
     Dosage: 10 MG/DAILY/PO
     Route: 048

REACTIONS (1)
  - MUSCLE CRAMP [None]
